FAERS Safety Report 10359406 (Version 1)
Quarter: 2014Q3

REPORT INFORMATION
  Report Type: Spontaneous
  Country: US (occurrence: US)
  Receive Date: 20140804
  Receipt Date: 20140804
  Transmission Date: 20150326
  Serious: Yes (Hospitalization)
  Sender: FDA-Public Use
  Company Number: US-AMGEN-USASP2014057175

PATIENT
  Age: 84 Year
  Sex: Female

DRUGS (1)
  1. SENSIPAR [Suspect]
     Active Substance: CINACALCET HYDROCHLORIDE
     Indication: HYPERPARATHYROIDISM SECONDARY
     Dosage: 30 MG,THREE TIMES A WEEK
     Route: 065
     Dates: end: 201403

REACTIONS (4)
  - Arterial disorder [Unknown]
  - Gastric disorder [Recovering/Resolving]
  - Dehydration [Unknown]
  - Blood calcium increased [Unknown]
